FAERS Safety Report 5303249-9 (Version None)
Quarter: 2007Q2

REPORT INFORMATION
  Report Type: 
  Country: None (occurrence: None)
  Receive Date: 20070420
  Receipt Date: 20070410
  Transmission Date: 20071010
  Serious: Yes (Other)
  Sender: FDA-Public Use
  Company Number: US-ELI_LILLY_AND_COMPANY-US200702004733

PATIENT
  Age: 63 Year
  Sex: Male
  Weight: 83.9 kg

DRUGS (9)
  1. ALIMTA [Suspect]
     Indication: LUNG CANCER METASTATIC
     Dosage: 1000 MG, OTHER
     Route: 042
     Dates: start: 20070216
  2. ALIMTA [Suspect]
     Dosage: 1000 MG, UNK
     Route: 042
     Dates: start: 20070312, end: 20070312
  3. DECADRON /CAN/ [Concomitant]
     Indication: PROPHYLAXIS
     Dosage: 4 MG, OTHER
     Dates: start: 20070215, end: 20070215
  4. DECADRON /CAN/ [Concomitant]
     Dosage: 8 MG, OTHER
     Dates: start: 20070311
  5. PALONOSETRON HYDROCHLORIDE [Concomitant]
     Indication: NAUSEA
     Dosage: 0.25 MG, UNK
  6. VITAMIN B-12 [Concomitant]
     Indication: VITAMIN SUPPLEMENTATION
     Dosage: 1000 UG, UNK
     Route: 030
     Dates: start: 20070209
  7. FOLIC ACID [Concomitant]
     Indication: VITAMIN SUPPLEMENTATION
     Dosage: 400 UG, UNK
     Route: 048
     Dates: start: 20070209
  8. DEXAMETHASONE [Concomitant]
     Indication: PROPHYLAXIS
     Dosage: 20 MG, UNK
     Route: 042
     Dates: start: 20070312
  9. ZANTAC [Concomitant]
     Indication: PROPHYLAXIS
     Dosage: 50 MG, UNK
     Route: 042
     Dates: start: 20070312

REACTIONS (12)
  - BLOOD PRESSURE DECREASED [None]
  - CONVULSION [None]
  - DIZZINESS [None]
  - DYSPEPSIA [None]
  - ERYTHEMA [None]
  - FEELING HOT [None]
  - FLUSHING [None]
  - NAUSEA [None]
  - PRURITUS [None]
  - RASH [None]
  - UNRESPONSIVE TO STIMULI [None]
  - WHEEZING [None]
